FAERS Safety Report 6499124-7 (Version None)
Quarter: 2009Q4

REPORT INFORMATION
  Report Type: 
  Country: None (occurrence: None)
  Receive Date: 20091215
  Receipt Date: 20091205
  Transmission Date: 20100525
  Serious: Yes (Other)
  Sender: FDA-Public Use
  Company Number: US-MILLENNIUM PHARMACEUTICALS, INC.-2009-05076

PATIENT
  Age: 17 Year
  Sex: Female
  Weight: 68.7 kg

DRUGS (23)
  1. VELCADE [Suspect]
     Indication: ACUTE MYELOID LEUKAEMIA
     Dosage: 1 MG/M2, CYCLIC
     Route: 040
     Dates: start: 20091123, end: 20091130
  2. CYTARABINE [Suspect]
     Indication: ACUTE MYELOID LEUKAEMIA
     Dosage: UNK
  3. CYTARABINE [Suspect]
     Dosage: 1000 MG/M2, CYCLIC
     Route: 042
     Dates: start: 20091123, end: 20091127
  4. ETOPOSIDE [Suspect]
     Indication: ACUTE MYELOID LEUKAEMIA
     Dosage: 150 MG/M2, CYCLIC
     Route: 042
     Dates: start: 20091123, end: 20091127
  5. ACYCLOVIR [Concomitant]
     Indication: DRUG USE FOR UNKNOWN INDICATION
  6. AZTREONAM [Concomitant]
     Indication: DRUG USE FOR UNKNOWN INDICATION
  7. CIPROFLAXACIN [Concomitant]
     Indication: DRUG USE FOR UNKNOWN INDICATION
  8. DIPHENHYDRAMINE HCL [Concomitant]
     Indication: DRUG USE FOR UNKNOWN INDICATION
  9. DOCUSATE [Concomitant]
     Indication: DRUG USE FOR UNKNOWN INDICATION
  10. FENTANYL [Concomitant]
     Indication: DRUG USE FOR UNKNOWN INDICATION
  11. FLUCONAZOLE [Concomitant]
     Indication: DRUG USE FOR UNKNOWN INDICATION
  12. GABAPENTIN [Concomitant]
     Indication: DRUG USE FOR UNKNOWN INDICATION
  13. HEPARIN [Concomitant]
     Indication: DRUG USE FOR UNKNOWN INDICATION
  14. HYDROXYPROPYL METHYLCELLULOSE [Concomitant]
     Indication: DRUG USE FOR UNKNOWN INDICATION
     Route: 047
  15. LIDOCAINE                          /00033402/ [Concomitant]
     Indication: DRUG USE FOR UNKNOWN INDICATION
     Route: 061
  16. LORAZEPAM [Concomitant]
     Indication: DRUG USE FOR UNKNOWN INDICATION
  17. METRONIDAZOLE [Concomitant]
     Indication: DRUG USE FOR UNKNOWN INDICATION
  18. ONDANSETRON [Concomitant]
     Indication: DRUG USE FOR UNKNOWN INDICATION
  19. PANTOPRAZOLE [Concomitant]
     Indication: DRUG USE FOR UNKNOWN INDICATION
  20. PYRIDOXINE [Concomitant]
     Indication: DRUG USE FOR UNKNOWN INDICATION
  21. SULFAMETHOXAZOLE AND TRIMETHOPRIM [Concomitant]
     Indication: DRUG USE FOR UNKNOWN INDICATION
  22. SUMATRIPTAN [Concomitant]
     Indication: DRUG USE FOR UNKNOWN INDICATION
  23. TRAZODONE HCL [Concomitant]
     Indication: DRUG USE FOR UNKNOWN INDICATION

REACTIONS (2)
  - PALMAR-PLANTAR ERYTHRODYSAESTHESIA SYNDROME [None]
  - STOMATITIS [None]
